FAERS Safety Report 8001421-0 (Version None)
Quarter: 2011Q4

REPORT INFORMATION
  Report Type: 
  Country: None (occurrence: None)
  Receive Date: 20111222
  Receipt Date: 20111214
  Transmission Date: 20120403
  Serious: Yes (Other)
  Sender: FDA-Public Use
  Company Number: ES-JNJFOC-20111208105

PATIENT
  Age: 32 Year
  Sex: Male

DRUGS (2)
  1. ASCORBIC ACID/CODEINE/PARACETAMOL [Suspect]
     Indication: PRODUCT USED FOR UNKNOWN INDICATION
     Dosage: 1-2 CAPSULES PER DAY
     Route: 065
  2. IBUPROFEN [Suspect]
     Indication: PRODUCT USED FOR UNKNOWN INDICATION
     Dosage: 600MG-1200MG
     Route: 065

REACTIONS (1)
  - HEPATITIS CHOLESTATIC [None]
